FAERS Safety Report 9174875 (Version 2)
Quarter: 2013Q2

REPORT INFORMATION
  Report Type: Spontaneous
  Country: KR (occurrence: None)
  Receive Date: 20130318
  Receipt Date: 20130605
  Transmission Date: 20140414
  Serious: Yes (Death, Other)
  Sender: FDA-Public Use
  Company Number: 13-F-KR-00084

PATIENT
  Age: 35 Year
  Sex: Female

DRUGS (1)
  1. FOLOTYN [Suspect]
     Indication: PERIPHERAL T-CELL LYMPHOMA UNSPECIFIED
     Route: 042
     Dates: start: 20130108, end: 20130212

REACTIONS (2)
  - Peripheral T-cell lymphoma unspecified [None]
  - Malignant neoplasm progression [None]
